FAERS Safety Report 9000098 (Version 5)
Quarter: 2013Q1

REPORT INFORMATION
  Report Type: Spontaneous
  Country: US (occurrence: US)
  Receive Date: 20130102
  Receipt Date: 20130206
  Transmission Date: 20140127
  Serious: Yes (Other)
  Sender: FDA-Public Use
  Company Number: US-JNJFOC-20121210704

PATIENT
  Age: 7 Decade
  Sex: Male

DRUGS (3)
  1. XARELTO [Suspect]
     Indication: CEREBROVASCULAR ACCIDENT PROPHYLAXIS
     Dosage: FOR TWO TO THREE MONTHS
     Route: 048
     Dates: start: 201207, end: 2012
  2. XARELTO [Suspect]
     Indication: ATRIAL FIBRILLATION
     Dosage: FOR TWO TO THREE MONTHS
     Route: 048
     Dates: start: 201207, end: 2012
  3. MULTIPLE MEDICATIONS, NOS [Concomitant]
     Route: 065

REACTIONS (2)
  - Pericardial haemorrhage [Recovered/Resolved]
  - Sinusitis [Unknown]
